FAERS Safety Report 5069074-1 (Version None)
Quarter: 2006Q3

REPORT INFORMATION
  Report Type: 
  Country: None (occurrence: None)
  Receive Date: 20060731
  Receipt Date: 20060719
  Transmission Date: 20061208
  Serious: Yes (Hospitalization)
  Sender: FDA-Public Use
  Company Number: SU-2006-004868

PATIENT
  Age: 61 Year
  Sex: Female

DRUGS (7)
  1. BENICAR [Suspect]
     Indication: HYPERTENSION
     Dosage: 10 MG QD PO
     Route: 048
     Dates: start: 20060113, end: 20060418
  2. VERAPAMIL [Concomitant]
  3. HYDROCHLOROTHIAZIDE [Concomitant]
  4. SYNTHROID [Concomitant]
  5. ASPIRIN [Concomitant]
  6. MULTIVITAMIN [Concomitant]
  7. ASCORBIC ACID [Concomitant]

REACTIONS (8)
  - ASTHENIA [None]
  - BURN OF INTERNAL ORGANS [None]
  - COLONIC POLYP [None]
  - DYSPNOEA [None]
  - HYPOKALAEMIA [None]
  - INTESTINAL FUNCTIONAL DISORDER [None]
  - MYALGIA [None]
  - PROCEDURAL COMPLICATION [None]
